FAERS Safety Report 23580676 (Version 1)
Quarter: 2024Q1

REPORT INFORMATION
  Report Type: Spontaneous
  Country: US (occurrence: US)
  Receive Date: 20240229
  Receipt Date: 20240229
  Transmission Date: 20240410
  Serious: No
  Sender: FDA-Public Use
  Company Number: US-SANDOZ-SDZ2024US020180

PATIENT
  Sex: Male

DRUGS (1)
  1. TRIFLURIDINE [Suspect]
     Active Substance: TRIFLURIDINE
     Indication: Product used for unknown indication
     Route: 065
     Dates: start: 20240218, end: 20240221

REACTIONS (3)
  - Swelling of eyelid [Unknown]
  - Halo vision [Unknown]
  - Vision blurred [Unknown]
